FAERS Safety Report 10342138 (Version 3)
Quarter: 2014Q3

REPORT INFORMATION
  Report Type: Spontaneous
  Country: FR (occurrence: FR)
  Receive Date: 20140725
  Receipt Date: 20140813
  Transmission Date: 20150326
  Serious: Yes (Other)
  Sender: FDA-Public Use
  Company Number: FR-JNJFOC-20140711205

PATIENT
  Age: 68 Year
  Sex: Male

DRUGS (3)
  1. IRBESARTAN. [Concomitant]
     Active Substance: IRBESARTAN
     Indication: HYPERTENSION
     Route: 065
     Dates: start: 2007
  2. ITRACONAZOLE. [Suspect]
     Active Substance: ITRACONAZOLE
     Indication: BRONCHOPULMONARY ASPERGILLOSIS
     Route: 065
     Dates: start: 201107
  3. ITRACONAZOLE. [Suspect]
     Active Substance: ITRACONAZOLE
     Indication: PULMONARY TUBERCULOSIS
     Route: 065
     Dates: start: 201107

REACTIONS (5)
  - Hypokalaemia [Recovered/Resolved]
  - Oedema [Recovering/Resolving]
  - Hypertension [Recovered/Resolved]
  - Overdose [Unknown]
  - Left ventricular hypertrophy [Unknown]

NARRATIVE: CASE EVENT DATE: 2012
